FAERS Safety Report 5200866-1 (Version None)
Quarter: 2006Q4

REPORT INFORMATION
  Report Type: 
  Country: None (occurrence: None)
  Receive Date: 20061229
  Receipt Date: 20061218
  Transmission Date: 20070319
  Serious: Yes (Other)
  Sender: FDA-Public Use
  Company Number: DILBE-06-0725

PATIENT
  Age: 30 Year
  Sex: Male
  Weight: 53 kg

DRUGS (2)
  1. DIPRIVAN [Suspect]
     Indication: SEDATION
     Dosage: 5.7 MG/KG/HR,INTRAVENOUS
     Route: 042
  2. ULTIVA [Concomitant]

REACTIONS (10)
  - ATRIAL FIBRILLATION [None]
  - BLOOD CREATINE PHOSPHOKINASE INCREASED [None]
  - BLOOD LACTIC ACID INCREASED [None]
  - ELECTROCARDIOGRAM T WAVE INVERSION [None]
  - LUNG INFECTION PSEUDOMONAL [None]
  - PROPOFOL INFUSION SYNDROME [None]
  - RESPIRATORY FAILURE [None]
  - RHABDOMYOLYSIS [None]
  - SINUS ARRHYTHMIA [None]
  - TROPONIN T INCREASED [None]
